FAERS Safety Report 7301933-9 (Version None)
Quarter: 2011Q1

REPORT INFORMATION
  Report Type: 
  Country: None (occurrence: None)
  Receive Date: 20110218
  Receipt Date: 20110214
  Transmission Date: 20110831
  Serious: Yes (Death, Other)
  Sender: FDA-Public Use
  Company Number: DK-ROCHE-759443

PATIENT

DRUGS (6)
  1. DOCETAXEL [Suspect]
     Dosage: DOSE REDUCTION OF 25% WAS PERFORMED.
     Route: 065
  2. OXALIPLATIN [Suspect]
     Dosage: DOSE REDUCTION OF 25% WAS PERFORMED.
     Route: 065
  3. DOCETAXEL [Suspect]
     Indication: GASTROOESOPHAGEAL CANCER
     Route: 065
  4. CAPECITABINE [Suspect]
     Dosage: DOSE REDUCTION OF 25% WAS PERFORMED.
     Route: 048
  5. OXALIPLATIN [Suspect]
     Indication: GASTROOESOPHAGEAL CANCER
     Route: 065
  6. CAPECITABINE [Suspect]
     Indication: GASTROOESOPHAGEAL CANCER
     Route: 048

REACTIONS (4)
  - SEPSIS [None]
  - FEBRILE NEUTROPENIA [None]
  - NEUTROPENIA [None]
  - NEUROPATHY PERIPHERAL [None]
